FAERS Safety Report 26201642 (Version 1)
Quarter: 2025Q4

REPORT INFORMATION
  Report Type: Spontaneous
  Country: US (occurrence: US)
  Receive Date: 20251226
  Receipt Date: 20251226
  Transmission Date: 20260118
  Serious: Yes (Life-Threatening, Hospitalization, Disabling, Other)
  Sender: SANOFI AVENTIS
  Company Number: US-MLMSERVICE-20251128-PI730760-00152-1

PATIENT
  Age: 63 Year
  Sex: Male

DRUGS (4)
  1. OXALIPLATIN [Suspect]
     Active Substance: OXALIPLATIN
     Indication: Adenocarcinoma gastric
     Dosage: 85 MG/M2 QCY  (FIRST BOLUS OF FOLFOX CHEMOTHERAPY)
  2. LEUCOVORIN [Suspect]
     Active Substance: LEUCOVORIN\LEUCOVORIN CALCIUM
     Indication: Adenocarcinoma gastric
     Dosage: 400 MG/M2 QCY (FIRST BOLUS OF FOLFOX CHEMOTHERAPY)
  3. FLUOROURACIL [Suspect]
     Active Substance: FLUOROURACIL
     Indication: Adenocarcinoma gastric
     Dosage: 400 MG/M2 QCY (FIRST BOLUS OF FOLFOX CHEMOTHERAPY)
  4. FLUOROURACIL [Suspect]
     Active Substance: FLUOROURACIL
     Dosage: 1200 MG/M2 QD (5-FU INFUSION PUMP FOR THE NEXT 48 H TO COMPLETE THE CHEMOTHERAPY CYCLE)

REACTIONS (16)
  - Neurotoxicity [Recovered/Resolved]
  - Aphasia [Recovered/Resolved]
  - Mental status changes [Recovered/Resolved]
  - Stereotypy [Recovered/Resolved]
  - Nausea [Recovered/Resolved]
  - Discoloured vomit [Recovered/Resolved]
  - Hemiparesis [Recovered/Resolved]
  - Confusional state [Recovered/Resolved]
  - Pyrexia [Recovered/Resolved]
  - Muscle twitching [Recovered/Resolved]
  - Partial seizures [Recovered/Resolved]
  - Generalised tonic-clonic seizure [Recovered/Resolved]
  - Nervous system disorder [Recovered/Resolved]
  - Dyskinesia [Recovered/Resolved]
  - Encephalopathy [Recovered/Resolved]
  - Off label use [Recovered/Resolved]
